FAERS Safety Report 14867582 (Version 1)
Quarter: 2018Q2

REPORT INFORMATION
  Report Type: Spontaneous
  Country: US (occurrence: US)
  Receive Date: 20180508
  Receipt Date: 20180508
  Transmission Date: 20180711
  Serious: No
  Sender: FDA-Public Use
  Company Number: US-ASTRAZENECA-2018SE48663

PATIENT
  Age: 28179 Day
  Sex: Male
  Weight: 86.2 kg

DRUGS (6)
  1. TUDORZA PRESSAIR [Suspect]
     Active Substance: ACLIDINIUM BROMIDE
     Indication: CHRONIC OBSTRUCTIVE PULMONARY DISEASE
     Dosage: 400MCG, 2 PUFFS DAILY AT NIGHT
     Route: 055
  2. METOPROLOL. [Suspect]
     Active Substance: METOPROLOL
     Indication: BLOOD PRESSURE INCREASED
     Dosage: DAILY
     Route: 048
  3. PROAIR HFA [Concomitant]
     Active Substance: ALBUTEROL SULFATE
     Indication: DYSPNOEA
     Dosage: AS REQUIRED
     Route: 055
  4. METFORMIN [Concomitant]
     Active Substance: METFORMIN HYDROCHLORIDE
     Indication: DIABETES MELLITUS
     Route: 048
  5. TUDORZA PRESSAIR [Suspect]
     Active Substance: ACLIDINIUM BROMIDE
     Indication: ASTHMA
     Dosage: 400MCG, 2 PUFFS DAILY AT NIGHT
     Route: 055
  6. ASPIRIN. [Concomitant]
     Active Substance: ASPIRIN
     Indication: ARTHRALGIA
     Route: 048

REACTIONS (4)
  - Off label use [Unknown]
  - Drug dose omission [Not Recovered/Not Resolved]
  - Blood pressure increased [Recovering/Resolving]
  - Device malfunction [Unknown]

NARRATIVE: CASE EVENT DATE: 20180409
